FAERS Safety Report 12690906 (Version 1)
Quarter: 2016Q3

REPORT INFORMATION
  Report Type: Report from Study
  Country: DE (occurrence: DE)
  Receive Date: 20160826
  Receipt Date: 20160826
  Transmission Date: 20161109
  Serious: Yes (Other)
  Sender: FDA-Public Use
  Company Number: DE-ABBVIE-15K-062-1426298-00

PATIENT
  Sex: Male

DRUGS (1)
  1. HUMIRA [Suspect]
     Active Substance: ADALIMUMAB
     Indication: PSORIASIS
     Route: 058
     Dates: start: 20150107

REACTIONS (3)
  - Fibrous histiocytoma [Recovered/Resolved]
  - Skin mass [Recovered/Resolved]
  - Skin mass [Not Recovered/Not Resolved]

NARRATIVE: CASE EVENT DATE: 2015
